FAERS Safety Report 15151962 (Version 1)
Quarter: 2018Q3

REPORT INFORMATION
  Report Type: Spontaneous
  Country: US (occurrence: US)
  Receive Date: 20180717
  Receipt Date: 20180717
  Transmission Date: 20181010
  Serious: Yes (Other)
  Sender: FDA-Public Use
  Company Number: US-BEH-2018092699

PATIENT
  Age: 42 Year
  Sex: Female
  Weight: 63.39 kg

DRUGS (9)
  1. HIZENTRA [Suspect]
     Active Substance: HUMAN IMMUNOGLOBULIN G
     Dosage: 9 G, QW
     Route: 058
     Dates: start: 20180606
  2. FLAXSEED [Concomitant]
     Active Substance: FLAX SEED
  3. HIZENTRA [Suspect]
     Active Substance: HUMAN IMMUNOGLOBULIN G
     Dosage: UNK
     Route: 058
  4. EPINEPHRINE. [Concomitant]
     Active Substance: EPINEPHRINE
  5. TINIDAZOLE. [Concomitant]
     Active Substance: TINIDAZOLE
  6. CEFUROXIME. [Concomitant]
     Active Substance: CEFUROXIME
  7. ACETAMINOPHEN. [Concomitant]
     Active Substance: ACETAMINOPHEN
  8. NALTREXONE [Concomitant]
     Active Substance: NALTREXONE
  9. HIZENTRA [Suspect]
     Active Substance: HUMAN IMMUNOGLOBULIN G
     Indication: IMMUNODEFICIENCY COMMON VARIABLE
     Dosage: UNK
     Route: 058

REACTIONS (2)
  - Throat irritation [Unknown]
  - Pharyngeal oedema [Unknown]

NARRATIVE: CASE EVENT DATE: 2018
